FAERS Safety Report 6217012-8 (Version None)
Quarter: 2009Q2

REPORT INFORMATION
  Report Type: 
  Country: None (occurrence: None)
  Receive Date: 20090604
  Receipt Date: 20090520
  Transmission Date: 20091009
  Serious: Yes (Death)
  Sender: FDA-Public Use
  Company Number: A-CH2009-24323

PATIENT
  Age: 40 Year
  Sex: Male

DRUGS (1)
  1. TRACLEER [Suspect]
     Indication: PULMONARY ARTERIAL HYPERTENSION
     Dosage: 250 MG QD ORAL
     Route: 048
     Dates: start: 20071101, end: 20090101

REACTIONS (4)
  - FAT EMBOLISM [None]
  - FEMUR FRACTURE [None]
  - POST PROCEDURAL SEPSIS [None]
  - PULMONARY EMBOLISM [None]
